FAERS Safety Report 13413800 (Version 1)
Quarter: 2017Q2

REPORT INFORMATION
  Report Type: Report from Study
  Country: US (occurrence: US)
  Receive Date: 20170407
  Receipt Date: 20170407
  Transmission Date: 20170830
  Serious: Yes (Hospitalization)
  Sender: FDA-Public Use
  Company Number: US-BRISTOL-MYERS SQUIBB COMPANY-BMS-2017-029608

PATIENT
  Age: 75 Year
  Sex: Female
  Weight: 94.8 kg

DRUGS (4)
  1. BRENTUXIMAB VEDOTIN [Suspect]
     Active Substance: BRENTUXIMAB VEDOTIN
     Indication: PRODUCT USED FOR UNKNOWN INDICATION
     Dosage: 176 MG, Q3WK
     Route: 042
     Dates: start: 20170313, end: 20170313
  2. NIVOLUMAB [Suspect]
     Active Substance: NIVOLUMAB
     Indication: PRODUCT USED FOR UNKNOWN INDICATION
     Dosage: 294 MG, Q3WK
     Route: 042
     Dates: start: 20170313, end: 20170313
  3. BRENTUXIMAB VEDOTIN [Suspect]
     Active Substance: BRENTUXIMAB VEDOTIN
     Indication: HODGKIN^S DISEASE
     Dosage: 1.8 MG/KG, Q3WK
     Route: 042
     Dates: start: 20161005, end: 20161005
  4. NIVOLUMAB [Suspect]
     Active Substance: NIVOLUMAB
     Indication: HODGKIN^S DISEASE
     Dosage: 3 MG/KG, Q3WK
     Route: 042
     Dates: start: 20161005, end: 20161005

REACTIONS (1)
  - Urinary tract infection [Recovering/Resolving]

NARRATIVE: CASE EVENT DATE: 20170331
